FAERS Safety Report 8912702 (Version 1)
Quarter: 2012Q4

REPORT INFORMATION
  Report Type: 
  Country: US (occurrence: US)
  Receive Date: 20121115
  Receipt Date: 20121115
  Transmission Date: 20130627
  Serious: Yes (Death, Hospitalization, Other)
  Sender: FDA-Public Use
  Company Number: US-AMGEN-USASP2012053310

PATIENT
  Age: 82 Year
  Sex: Male
  Weight: 80.4 kg

DRUGS (8)
  1. PROCRIT [Suspect]
     Indication: NEPHROGENIC ANAEMIA
     Dosage: 20000 unit of month
     Route: 058
  2. COREG [Concomitant]
     Dosage: 12.5 mg, bid
  3. SODIUM BICARBONATE [Concomitant]
     Dosage: 650 mg, bid
  4. LASIX                              /00032601/ [Concomitant]
     Dosage: 40 mg, qd
  5. SIMVASTATIN [Concomitant]
     Dosage: 20 mg, qd
  6. TEMAZEPAM [Concomitant]
     Dosage: 15 mg, every h.s
  7. ASPIRIN [Concomitant]
     Dosage: 81 mg, qd
  8. VITAMIN D /00107901/ [Concomitant]
     Dosage: 400 IU, qd

REACTIONS (18)
  - Death [Fatal]
  - Transient ischaemic attack [Unknown]
  - Pneumonia [Recovering/Resolving]
  - VIIth nerve paralysis [Unknown]
  - Mitral valve incompetence [Unknown]
  - Aortic stenosis [Unknown]
  - Left ventricular hypertrophy [Unknown]
  - Hypertensive nephropathy [Unknown]
  - Dementia [Unknown]
  - Cerebrovascular accident [Unknown]
  - Dehydration [Recovering/Resolving]
  - Malnutrition [Recovering/Resolving]
  - Hypernatraemia [Recovering/Resolving]
  - Hyperlipidaemia [Recovering/Resolving]
  - Cerebrovascular disorder [Unknown]
  - Hypoacusis [Unknown]
  - Blood magnesium decreased [Unknown]
  - Weight decreased [Unknown]
